FAERS Safety Report 7056066-6 (Version None)
Quarter: 2010Q4

REPORT INFORMATION
  Report Type: 
  Country: None (occurrence: None)
  Receive Date: 20101021
  Receipt Date: 20101013
  Transmission Date: 20110411
  Serious: Yes (Other)
  Sender: FDA-Public Use
  Company Number: US-AMGEN INC.-QUU424688

PATIENT

DRUGS (3)
  1. NPLATE [Suspect]
     Indication: IDIOPATHIC THROMBOCYTOPENIC PURPURA
     Dosage: 300 A?G, QWK
     Dates: start: 20090825, end: 20100608
  2. NPLATE [Suspect]
     Dates: start: 20090825
  3. IMMU-G [Concomitant]
     Dosage: UNK UNK, UNK
     Dates: start: 20090821

REACTIONS (3)
  - MIXED CONNECTIVE TISSUE DISEASE [None]
  - RASH [None]
  - SKIN BURNING SENSATION [None]
